FAERS Safety Report 13795514 (Version 3)
Quarter: 2020Q2

REPORT INFORMATION
  Report Type: Spontaneous
  Country: US (occurrence: US)
  Receive Date: 20170726
  Receipt Date: 20200616
  Transmission Date: 20200713
  Serious: Yes (Hospitalization, Other)
  Sender: FDA-Public Use
  Company Number: US-BRISTOL-MYERS SQUIBB COMPANY-BMS-2017-064751

PATIENT
  Sex: Female
  Weight: 63.49 kg

DRUGS (1)
  1. OPDIVO [Suspect]
     Active Substance: NIVOLUMAB
     Indication: UTERINE CANCER
     Dosage: UNK
     Route: 065
     Dates: start: 20161215, end: 20170621

REACTIONS (7)
  - Intentional product use issue [Unknown]
  - Paraesthesia [Unknown]
  - Hypoaesthesia [Unknown]
  - Surgery [Unknown]
  - Weight decreased [Unknown]
  - Paralysis [Unknown]
  - Guillain-Barre syndrome [Not Recovered/Not Resolved]
